FAERS Safety Report 12539751 (Version 2)
Quarter: 2016Q3

REPORT INFORMATION
  Report Type: Report from Study
  Country: US (occurrence: US)
  Receive Date: 20160708
  Receipt Date: 20160815
  Transmission Date: 20161109
  Serious: Yes (Hospitalization)
  Sender: FDA-Public Use
  Company Number: US-PFIZER INC-2016306162

PATIENT
  Age: 67 Year
  Sex: Female

DRUGS (25)
  1. TORSEMIDE. [Concomitant]
     Active Substance: TORSEMIDE
     Dosage: UNK
  2. PROTONIX [Concomitant]
     Active Substance: PANTOPRAZOLE SODIUM
     Dosage: UNK
  3. METOPROLOL. [Concomitant]
     Active Substance: METOPROLOL
     Dosage: UNK
  4. DIGOXIN. [Concomitant]
     Active Substance: DIGOXIN
     Dosage: UNK
  5. TRAVATAN Z [Concomitant]
     Active Substance: TRAVOPROST
     Dosage: UNK
  6. CYCLOBENZAPRINE [Concomitant]
     Active Substance: CYCLOBENZAPRINE
     Dosage: UNK
  7. KLOR-CON [Concomitant]
     Active Substance: POTASSIUM CHLORIDE
     Dosage: UNK
  8. REMODULIN [Suspect]
     Active Substance: TREPROSTINIL
     Indication: PULMONARY ARTERIAL HYPERTENSION
     Dosage: 0.010 UG/KG, (2.5MG/ML) (10.25 NG/KG/MIN)
     Route: 058
     Dates: start: 20160505
  9. NORVASC [Concomitant]
     Active Substance: AMLODIPINE BESYLATE
     Dosage: UNK
  10. LETAIRIS [Suspect]
     Active Substance: AMBRISENTAN
     Indication: PULMONARY ARTERIAL HYPERTENSION
     Dosage: 4.5 MG, 1X/DAY
     Dates: start: 20160607
  11. UPTRAVI [Suspect]
     Active Substance: SELEXIPAG
     Indication: PULMONARY HYPERTENSION
  12. PRILOSEC [Concomitant]
     Active Substance: OMEPRAZOLE MAGNESIUM
     Dosage: UNK
  13. FENOFIBRATE. [Concomitant]
     Active Substance: FENOFIBRATE
     Dosage: UNK
  14. ADCIRCA [Suspect]
     Active Substance: TADALAFIL
     Indication: PULMONARY HYPERTENSION
     Dosage: UNK, 2X/DAY
  15. GLIPIZIDE. [Concomitant]
     Active Substance: GLIPIZIDE
     Dosage: UNK
  16. RESTASIS [Concomitant]
     Active Substance: CYCLOSPORINE
     Dosage: UNK
  17. SILDENAFIL CITRATE. [Suspect]
     Active Substance: SILDENAFIL CITRATE
     Indication: PULMONARY HYPERTENSION
     Dosage: UNK UNK, 2X/DAY
     Dates: start: 20160613
  18. LETAIRIS [Suspect]
     Active Substance: AMBRISENTAN
     Dosage: 5 MG, DAILY
     Dates: start: 20160607
  19. REMODULIN [Suspect]
     Active Substance: TREPROSTINIL
     Dosage: 10.25 MG/KG, UNK (10.25 NG/KG/MIN)
     Route: 058
     Dates: start: 20160415, end: 20160616
  20. REMODULIN [Suspect]
     Active Substance: TREPROSTINIL
     Dosage: 0.010 UG/KG, (2.5MG/ML) (10.25 NG/KG/MIN)
     Route: 058
     Dates: end: 20160613
  21. DIAZEPAM. [Concomitant]
     Active Substance: DIAZEPAM
     Dosage: UNK
  22. PERCOCET [Concomitant]
     Active Substance: ACETAMINOPHEN\OXYCODONE HYDROCHLORIDE
     Dosage: UNK
  23. METOPROLOL SUCCINATE. [Concomitant]
     Active Substance: METOPROLOL SUCCINATE
  24. UPTRAVI [Suspect]
     Active Substance: SELEXIPAG
     Indication: PULMONARY ARTERIAL HYPERTENSION
     Dosage: UNK UNK, 2X/DAY
     Dates: start: 20160613
  25. DEPO-MEDROL [Concomitant]
     Active Substance: METHYLPREDNISOLONE ACETATE
     Dosage: UNK

REACTIONS (5)
  - Fall [Unknown]
  - Myalgia [Unknown]
  - Nausea [Unknown]
  - Headache [Unknown]
  - Dizziness [Unknown]

NARRATIVE: CASE EVENT DATE: 20160604
